FAERS Safety Report 9559210 (Version 1)
Quarter: 2013Q3

REPORT INFORMATION
  Report Type: Spontaneous
  Country: US (occurrence: US)
  Receive Date: 20130927
  Receipt Date: 20130927
  Transmission Date: 20140515
  Serious: No
  Sender: FDA-Public Use
  Company Number: US-009507513-1309USA005502

PATIENT
  Age: 17 Year
  Sex: Female
  Weight: 64.85 kg

DRUGS (2)
  1. IMPLANON [Suspect]
     Indication: CONTRACEPTION
     Dosage: 3 YEAR
     Route: 059
     Dates: start: 20120813
  2. IRON (UNSPECIFIED) [Concomitant]
     Indication: HAEMORRHAGE

REACTIONS (6)
  - Menorrhagia [Unknown]
  - Amenorrhoea [Unknown]
  - Weight increased [Unknown]
  - Acne [Unknown]
  - Headache [Unknown]
  - Muscle spasms [Unknown]
